FAERS Safety Report 5811431-7 (Version None)
Quarter: 2008Q3

REPORT INFORMATION
  Report Type: 
  Country: None (occurrence: None)
  Receive Date: 20080716
  Receipt Date: 20080708
  Transmission Date: 20090109
  Serious: Yes (Hospitalization)
  Sender: FDA-Public Use
  Company Number: US-JNJFOC-20080703335

PATIENT
  Sex: Male

DRUGS (3)
  1. IBUPROFEN [Suspect]
     Indication: PAIN
     Route: 048
  2. ALDARA [Suspect]
     Indication: ACTINIC KERATOSIS
     Route: 061
  3. ACYCLOVIR [Suspect]
     Indication: ORAL HERPES

REACTIONS (7)
  - HYPERHIDROSIS [None]
  - LIP EROSION [None]
  - LIP PAIN [None]
  - NAUSEA [None]
  - PAIN IN JAW [None]
  - SWELLING [None]
  - ULCER [None]
